FAERS Safety Report 20533167 (Version 1)
Quarter: 2022Q1

REPORT INFORMATION
  Report Type: Spontaneous
  Country: US (occurrence: None)
  Receive Date: 20220301
  Receipt Date: 20220301
  Transmission Date: 20220423
  Serious: No
  Sender: FDA-Public Use
  Company Number: None

PATIENT
  Age: 16 Year
  Sex: Female

DRUGS (1)
  1. OMNITROPE [Suspect]
     Active Substance: SOMATROPIN
     Dosage: OTHER QUANTITY : 2.2;?FREQUENCY : DAILY;?
     Route: 058
     Dates: start: 202111

REACTIONS (1)
  - Knee operation [None]

NARRATIVE: CASE EVENT DATE: 20220222
